FAERS Safety Report 7022255-X (Version None)
Quarter: 2010Q3

REPORT INFORMATION
  Report Type: 
  Country: None (occurrence: None)
  Receive Date: 20100930
  Receipt Date: 20100916
  Transmission Date: 20110219
  Serious: Yes (Hospitalization, Other)
  Sender: FDA-Public Use
  Company Number: RU-ASTRAZENECA-2010SE43207

PATIENT
  Age: 20523 Day
  Sex: Male
  Weight: 96 kg

DRUGS (28)
  1. OMEPRAZOLE [Suspect]
     Route: 048
  2. RIVAROXABAN [Suspect]
     Indication: ACUTE CORONARY SYNDROME
     Route: 048
     Dates: start: 20100315, end: 20100512
  3. RIVAROXABAN [Suspect]
     Route: 048
     Dates: start: 20100530
  4. RIVAROXABAN [Suspect]
     Route: 048
     Dates: start: 20100101, end: 20100831
  5. RIVAROXABAN [Suspect]
     Route: 048
     Dates: start: 20100901, end: 20100905
  6. RIVAROXABAN [Suspect]
     Route: 048
     Dates: start: 20100906, end: 20100907
  7. ATORVASTATIN [Suspect]
  8. AMIODARONE [Suspect]
  9. ASPIRIN [Concomitant]
     Indication: ACUTE CORONARY SYNDROME
     Dates: end: 20100308
  10. ASPIRIN [Concomitant]
     Dates: end: 20100429
  11. ASPIRIN [Concomitant]
     Dates: start: 20100430
  12. LISINOPRIL [Concomitant]
  13. CLOPIDOGREL [Concomitant]
     Indication: ACUTE CORONARY SYNDROME
     Dates: end: 20100318
  14. CLOPIDOGREL [Concomitant]
     Dates: start: 20100323, end: 20100331
  15. HYDROCHLOROTHIAZIDE [Concomitant]
  16. PERINDOPRIL [Concomitant]
  17. BISOPROLOL [Concomitant]
  18. GLUCOSE [Concomitant]
  19. POTASSIUM CHLORIDE [Concomitant]
  20. MAGNESIUM SULFATE [Concomitant]
  21. ISOSORBIDE MONONITRATE [Concomitant]
  22. PHENAZEPAM [Concomitant]
  23. BETAXOLOL [Concomitant]
  24. SODIUM CHLORIDE [Concomitant]
  25. SIMVASTATIN [Concomitant]
  26. SPIRONOLACTONE [Concomitant]
  27. DILTIAZEM [Concomitant]
  28. ISOSORBIDE TRINITRATE [Concomitant]

REACTIONS (2)
  - GASTRITIS EROSIVE [None]
  - HEPATIC ENZYME INCREASED [None]
